FAERS Safety Report 8368519-9 (Version None)
Quarter: 2012Q2

REPORT INFORMATION
  Report Type: 
  Country: None (occurrence: None)
  Receive Date: 20120518
  Receipt Date: 20120508
  Transmission Date: 20120825
  Serious: Yes (Hospitalization, Other)
  Sender: FDA-Public Use
  Company Number: US-BIOGENIDEC-2010BI000133

PATIENT
  Age: 51 Year
  Sex: Male

DRUGS (3)
  1. AVONEX [Suspect]
     Route: 030
     Dates: start: 20041101
  2. AVONEX [Suspect]
     Indication: MULTIPLE SCLEROSIS
     Route: 030
     Dates: start: 20010329
  3. AVONEX [Suspect]
     Route: 030

REACTIONS (4)
  - LIP AND/OR ORAL CAVITY CANCER STAGE IV [None]
  - HEAD AND NECK CANCER [None]
  - INJECTION SITE ERYTHEMA [None]
  - NEOPLASM MALIGNANT [None]
